FAERS Safety Report 23792912 (Version 1)
Quarter: 2024Q2

REPORT INFORMATION
  Report Type: Spontaneous
  Country: US (occurrence: US)
  Receive Date: 20240429
  Receipt Date: 20240429
  Transmission Date: 20240716
  Serious: Yes (Other)
  Sender: FDA-Public Use
  Company Number: US-AMGEN-USASP2024082317

PATIENT
  Age: 22 Year
  Sex: Male

DRUGS (3)
  1. CARFILZOMIB [Suspect]
     Active Substance: CARFILZOMIB
     Indication: Transplant rejection
     Dosage: UNK
     Route: 065
  2. CARFILZOMIB [Suspect]
     Active Substance: CARFILZOMIB
     Indication: Off label use
  3. Immunoglobulin [Concomitant]
     Indication: Transplant rejection
     Dosage: UNK
     Route: 042

REACTIONS (3)
  - Transplant rejection [Recovering/Resolving]
  - Drug ineffective for unapproved indication [Unknown]
  - Off label use [Unknown]
